FAERS Safety Report 6130494-5 (Version None)
Quarter: 2009Q1

REPORT INFORMATION
  Report Type: 
  Country: None (occurrence: None)
  Receive Date: 20090323
  Receipt Date: 20090312
  Transmission Date: 20090719
  Serious: Yes (Hospitalization)
  Sender: FDA-Public Use
  Company Number: 09US000168

PATIENT
  Sex: Female

DRUGS (2)
  1. HEMORRHOIDAL SUPPOS 394 (PHENYLEPHRINE  HYDROCHLORIDE .25%, COCOA BUTT [Suspect]
     Dosage: SUPPOSITORY
     Route: 054
  2. HYDROCORTISONE 1% OINTMENT [Suspect]
     Dosage: (NOT CODED)

REACTIONS (2)
  - DRUG HYPERSENSITIVITY [None]
  - EXPIRED DRUG ADMINISTERED [None]
